FAERS Safety Report 9205422 (Version 1)
Quarter: 2013Q2

REPORT INFORMATION
  Report Type: Spontaneous
  Country: US (occurrence: US)
  Receive Date: 20130403
  Receipt Date: 20130403
  Transmission Date: 20140414
  Serious: Yes (Death)
  Sender: FDA-Public Use
  Company Number: US-AMGEN-USASP2013022558

PATIENT
  Age: 85 Year
  Sex: Female

DRUGS (5)
  1. ENBREL [Suspect]
     Indication: PRODUCT USED FOR UNKNOWN INDICATION
     Dosage: 50 MG, QWK
     Route: 058
  2. COSOPT [Concomitant]
     Dosage: 2-0.5% OP
  3. ALPHAGAN [Concomitant]
     Dosage: UNK
  4. LUMIGAN [Concomitant]
     Dosage: 220 MG, UNK
  5. ALEVE [Concomitant]
     Dosage: 220 MG, UNK

REACTIONS (1)
  - Death [Fatal]
